FAERS Safety Report 7911709-7 (Version None)
Quarter: 2011Q4

REPORT INFORMATION
  Report Type: 
  Country: None (occurrence: None)
  Receive Date: 20111114
  Receipt Date: 20111109
  Transmission Date: 20120403
  Serious: Yes (Hospitalization, Other)
  Sender: FDA-Public Use
  Company Number: US-JNJFOC-20101007429

PATIENT
  Sex: Female
  Weight: 99.79 kg

DRUGS (7)
  1. LEVAQUIN [Suspect]
     Indication: PNEUMONIA
     Route: 048
     Dates: start: 20090201, end: 20090401
  2. AMITIZA [Concomitant]
  3. VICODIN [Concomitant]
  4. LEVOXYL [Concomitant]
  5. LEVAQUIN [Suspect]
     Indication: BRONCHITIS
     Route: 048
     Dates: start: 20090201, end: 20090401
  6. FLEXERIL [Concomitant]
  7. LANTUS [Concomitant]

REACTIONS (2)
  - LIGAMENT RUPTURE [None]
  - TENDON RUPTURE [None]
